FAERS Safety Report 19801067 (Version 3)
Quarter: 2021Q3

REPORT INFORMATION
  Report Type: Report from Study
  Country: US (occurrence: US)
  Receive Date: 20210907
  Receipt Date: 20210929
  Transmission Date: 20211014
  Serious: Yes (Life-Threatening, Hospitalization)
  Sender: FDA-Public Use
  Company Number: US-G1-000333

PATIENT
  Age: 48 Year
  Sex: Male

DRUGS (29)
  1. TRILACICLIB [Suspect]
     Active Substance: TRILACICLIB
     Indication: MYELOSUPPRESSION
     Dosage: TIME INTERVAL: CYCLICAL; 240 MG/M2 ON DAY 1 AND 2 OF EACH CYCLE
     Route: 042
     Dates: start: 20210630, end: 20210812
  2. BEVACIZUMAB. [Suspect]
     Active Substance: BEVACIZUMAB
     Indication: COLORECTAL CANCER METASTATIC
     Dosage: TIME INTERVAL: CYCLICAL; 5 MG/KG
     Route: 042
     Dates: start: 20210630, end: 20210728
  3. 1224868 (GLOBALC3SEP20): TYLENOL [Concomitant]
     Indication: ARTHRALGIA
     Dosage: TIME INTERVAL: AS NECESSARY
     Route: 048
     Dates: start: 20210401
  4. 1325787 (GLOBALC3SEP20): DICYCLOMINE [Concomitant]
     Indication: ABDOMINAL PAIN UPPER
     Dosage: TIME INTERVAL: AS NECESSARY
     Route: 048
     Dates: start: 2021
  5. 1610929 (GLOBALC3SEP20): LEVETIRACETAM [Concomitant]
     Indication: SEIZURE
     Route: 048
     Dates: start: 20210514
  6. 340333 (GLOBALC3SEP20): ATROPINE [Concomitant]
     Indication: PROPHYLAXIS
     Route: 042
     Dates: start: 20210630
  7. 4086519 (GLOBALC3SEP20): CINVANTI [Concomitant]
     Indication: PROPHYLAXIS
     Route: 042
     Dates: start: 20210630
  8. 1328969 (GLOBALC3SEP20): ZANAFLEX [Concomitant]
     Indication: MYALGIA
     Dosage: AT NIGHT
     Route: 048
     Dates: start: 20210701
  9. 2650411 (GLOBALC3SEP20): ELIQUIS [Concomitant]
     Indication: PULMONARY EMBOLISM
     Route: 048
     Dates: start: 20210820
  10. 1247550 (GLOBALC3SEP20): PRILOSEC [Concomitant]
     Indication: DYSPEPSIA
     Route: 048
     Dates: start: 2008
  11. 1265079 (GLOBALC3SEP20): DECADRON [Concomitant]
     Indication: PROPHYLAXIS
     Route: 042
     Dates: start: 20210630
  12. 2455124 (GLOBALC3SEP20): HYOSCYAMINE [Concomitant]
     Indication: ABDOMINAL PAIN UPPER
     Dosage: TIME INTERVAL: AS NECESSARY
     Route: 048
     Dates: start: 20210715
  13. 1262395 (GLOBALC3SEP20): LISINOPRIL [Concomitant]
     Indication: HYPERTENSION
     Route: 048
     Dates: start: 20210809
  14. FLUOROURACIL. [Suspect]
     Active Substance: FLUOROURACIL
     Indication: COLORECTAL CANCER METASTATIC
     Dosage: TIME INTERVAL: CYCLICAL; 1200 MG/M2
     Route: 042
     Dates: start: 20210630, end: 202108
  15. 2787846 (GLOBALC3SEP20): OXYCODONE [Concomitant]
     Indication: ARTHRALGIA
     Dosage: TIME INTERVAL: AS NECESSARY
     Route: 048
     Dates: start: 20210521
  16. 4519200 (GLOBALC3SEP20): PROCHLORPERAZINE [Concomitant]
     Indication: NAUSEA
     Dosage: TIME INTERVAL: AS NECESSARY
     Route: 048
     Dates: start: 20210701
  17. 3614722 (GLOBALC3SEP20): MAGIC MOUTHWASH [Concomitant]
     Indication: MUCOSAL INFLAMMATION
     Dosage: TIME INTERVAL: AS NECESSARY; S+S
     Dates: start: 20210820
  18. BEVACIZUMAB. [Suspect]
     Active Substance: BEVACIZUMAB
     Indication: COLORECTAL CANCER METASTATIC
     Dosage: TIME INTERVAL: CYCLICAL; 5 MG/KG ON DAY 1 OF EACH CYCLE
     Route: 042
     Dates: start: 20210811, end: 20210811
  19. IRINOTECAN [Suspect]
     Active Substance: IRINOTECAN
     Indication: COLORECTAL CANCER METASTATIC
     Dosage: TIME INTERVAL: CYCLICAL; 165 MG/M2 ON DAY 1 OF EACH CYCLE
     Route: 042
     Dates: start: 20210630, end: 20210811
  20. LEUCOVORIN. [Suspect]
     Active Substance: LEUCOVORIN
     Indication: COLORECTAL CANCER METASTATIC
     Dosage: TIME INTERVAL: CYCLICAL; 200 MG/M2 ON DAY 1 OF EACH CYCLE
     Route: 042
     Dates: start: 20210630, end: 20210811
  21. 1264475 (GLOBALC3SEP20): ALOXI [Concomitant]
     Indication: PROPHYLAXIS
     Route: 042
     Dates: start: 20210630
  22. 1226812 (GLOBALC3SEP20): KLOR?CON [Concomitant]
     Indication: HYPOKALAEMIA
     Route: 048
     Dates: start: 20210701, end: 20210707
  23. 1226812 (GLOBALC3SEP20): KLOR?CON [Concomitant]
     Indication: HYPOKALAEMIA
     Route: 048
     Dates: start: 20210715
  24. 1263320 (GLOBALC3SEP20): ATIVAN [Concomitant]
     Indication: INSOMNIA
     Dosage: TIME INTERVAL: AS NECESSARY; HS PRN
     Route: 048
     Dates: start: 20210707
  25. 1325245 (GLOBALC3SEP20): CALCIUM [Concomitant]
     Indication: HYPOKALAEMIA
     Route: 048
     Dates: start: 20210803
  26. 2650411 (GLOBALC3SEP20): ELIQUIS [Concomitant]
     Indication: PULMONARY EMBOLISM
     Route: 048
     Dates: start: 2021
  27. OXALIPLATIN. [Suspect]
     Active Substance: OXALIPLATIN
     Indication: COLORECTAL CANCER METASTATIC
     Dosage: TIME INTERVAL: CYCLICAL; 85 MG/M2 ON DAY 1 OF EACH CYCLE
     Route: 042
     Dates: start: 20210630, end: 20210811
  28. 1251764 (GLOBALC3SEP20): CLARITIN [Concomitant]
     Indication: SEASONAL ALLERGY
     Dosage: TIME INTERVAL: AS NECESSARY
     Route: 048
     Dates: start: 2010
  29. 1265079 (GLOBALC3SEP20): DECADRON [Concomitant]
     Indication: PROPHYLAXIS
     Dosage: TIME INTERVAL: 0.33333333 DAYS
     Route: 048
     Dates: start: 20210701

REACTIONS (2)
  - Hypokalaemia [Recovered/Resolved]
  - Pulmonary embolism [Not Recovered/Not Resolved]

NARRATIVE: CASE EVENT DATE: 20210820
